FAERS Safety Report 4688856-9 (Version None)
Quarter: 2005Q2

REPORT INFORMATION
  Report Type: 
  Country: None (occurrence: None)
  Receive Date: 20050613
  Receipt Date: 20050606
  Transmission Date: 20051028
  Serious: Yes (Hospitalization)
  Sender: FDA-Public Use
  Company Number: DK-GLAXOSMITHKLINE-B0384050A

PATIENT
  Age: 23 Year
  Sex: Female

DRUGS (2)
  1. MALARONE [Suspect]
     Indication: PROPHYLAXIS
     Route: 065
  2. PENICILLIN [Concomitant]
     Indication: PARATYPHOID FEVER
     Route: 065

REACTIONS (2)
  - CONSTIPATION [None]
  - DIARRHOEA [None]
